FAERS Safety Report 6293463-0 (Version None)
Quarter: 2009Q3

REPORT INFORMATION
  Report Type: 
  Country: None (occurrence: None)
  Receive Date: 20090803
  Receipt Date: 20080310
  Transmission Date: 20100115
  Serious: Yes (Other)
  Sender: FDA-Public Use
  Company Number: US-ASTRAZENECA-2007UW14104

PATIENT
  Age: 19997 Day
  Sex: Male
  Weight: 148.3 kg

DRUGS (11)
  1. SEROQUEL [Suspect]
     Indication: SLEEP DISORDER
     Dosage: 100 - 300 MG
     Route: 048
     Dates: start: 20040119
  2. SEROQUEL [Suspect]
     Route: 048
     Dates: start: 20040401, end: 20050201
  3. DEPAKOTE [Concomitant]
     Dosage: 100 MG 2 QHS
     Dates: start: 20040119
  4. LABETALOL HCL [Concomitant]
     Dates: start: 20040119
  5. LIPITOR [Concomitant]
     Dates: start: 20040119
  6. NEURONTIN [Concomitant]
     Dates: start: 20040119
  7. RISPERDAL [Concomitant]
     Dates: start: 20040101, end: 20050101
  8. RISPERDAL [Concomitant]
     Dosage: 1 - 8 MG
     Dates: start: 20040119
  9. SYNTHROID [Concomitant]
     Dates: start: 20060206
  10. TYLENOL (CAPLET) [Concomitant]
     Indication: PAIN
     Dates: start: 20060824
  11. TRAZODONE HCL [Concomitant]
     Dates: start: 20040426

REACTIONS (2)
  - METABOLIC ENCEPHALOPATHY [None]
  - TYPE 2 DIABETES MELLITUS [None]
